FAERS Safety Report 4642983-0 (Version None)
Quarter: 2005Q2

REPORT INFORMATION
  Report Type: 
  Country: None (occurrence: None)
  Receive Date: 20050422
  Receipt Date: 20040908
  Transmission Date: 20051028
  Serious: Yes (Death, Other)
  Sender: FDA-Public Use
  Company Number: US-ABBOTT-04P-163-0272673-00

PATIENT
  Sex: Male

DRUGS (10)
  1. HUMIRA [Suspect]
     Indication: RHEUMATOID ARTHRITIS
     Route: 058
     Dates: start: 20030325, end: 20030901
  2. HUMIRA [Suspect]
     Route: 058
     Dates: start: 20030901, end: 20040101
  3. HUMIRA [Suspect]
     Route: 058
     Dates: start: 20040201, end: 20040629
  4. METHOTREXATE [Concomitant]
     Indication: RHEUMATOID ARTHRITIS
     Route: 058
     Dates: start: 20020618, end: 20030523
  5. LEFLUNOMIDE [Concomitant]
     Indication: RHEUMATOID ARTHRITIS
     Route: 048
     Dates: start: 20040216, end: 20040601
  6. LEFLUNOMIDE [Concomitant]
     Indication: ASTHENIA
  7. LEFLUNOMIDE [Concomitant]
     Indication: DYSPNOEA
  8. METHOTREXATE SODIUM [Concomitant]
     Indication: DRUG USE FOR UNKNOWN INDICATION
     Dates: start: 20020618, end: 20030523
  9. PREDNISONE [Concomitant]
     Indication: ASTHENIA
  10. PREDNISONE [Concomitant]
     Indication: DYSPNOEA

REACTIONS (3)
  - ASTHENIA [None]
  - MYOCARDIAL INFARCTION [None]
  - PULMONARY FIBROSIS [None]
